FAERS Safety Report 26063128 (Version 1)
Quarter: 2025Q4

REPORT INFORMATION
  Report Type: Spontaneous
  Country: EU (occurrence: EU)
  Receive Date: 20251119
  Receipt Date: 20251119
  Transmission Date: 20260118
  Serious: Yes (Death, Hospitalization, Other)
  Sender: AMGEN
  Company Number: EU-AMGEN-ITASP2025224430

PATIENT

DRUGS (1)
  1. FILGRASTIM [Suspect]
     Active Substance: FILGRASTIM
     Indication: Prophylaxis
     Dosage: 10 MICROGRAM/KILOGRAM, QD, ON DAY PLUS 5
     Route: 040

REACTIONS (5)
  - Transplant [Fatal]
  - Unevaluable event [Unknown]
  - Pyrexia [Unknown]
  - Haematological malignancy [Unknown]
  - Graft versus host disease [Unknown]
